FAERS Safety Report 10389263 (Version 4)
Quarter: 2014Q3

REPORT INFORMATION
  Report Type: Spontaneous
  Country: JP (occurrence: JP)
  Receive Date: 20140818
  Receipt Date: 20140912
  Transmission Date: 20150326
  Serious: Yes (Death, Other)
  Sender: FDA-Public Use
  Company Number: JP-AMGEN-JPNSP2014059683

PATIENT
  Age: 71 Year
  Sex: Female
  Weight: 49 kg

DRUGS (15)
  1. VECTIBIX [Suspect]
     Active Substance: PANITUMUMAB
     Indication: METASTASES TO LIVER
     Dosage: 290 MG, Q3WEEKS
     Route: 041
     Dates: start: 20120613, end: 20120704
  2. FLUOROURACIL. [Concomitant]
     Active Substance: FLUOROURACIL
     Dosage: 2350 MG, Q3WEEKS
     Route: 041
     Dates: start: 20120613, end: 20120704
  3. ELPLAT [Concomitant]
     Active Substance: OXALIPLATIN
     Indication: METASTASES TO LIVER
     Dosage: 75 MG, Q3WEEKS
     Route: 041
     Dates: start: 20120613, end: 20120704
  4. CALCIUM LEVOFOLINATE [Concomitant]
     Active Substance: LEVOLEUCOVORIN CALCIUM
     Indication: COLON CANCER
     Dosage: 300 MG, UNK
     Route: 041
     Dates: start: 20120229, end: 20120718
  5. VECTIBIX [Suspect]
     Active Substance: PANITUMUMAB
     Indication: COLON CANCER
     Dosage: 360 MG, Q3WEEKS
     Route: 041
     Dates: start: 20120229, end: 20120509
  6. VECTIBIX [Suspect]
     Active Substance: PANITUMUMAB
     Dosage: 290 MG, UNK
     Route: 041
     Dates: start: 20120718, end: 20120718
  7. TOPOTECIN [Concomitant]
     Active Substance: IRINOTECAN HYDROCHLORIDE
     Indication: METASTASES TO LIVER
  8. FLUOROURACIL. [Concomitant]
     Active Substance: FLUOROURACIL
     Indication: COLON CANCER
     Dosage: 490 MG, Q3WEEKS
     Route: 040
     Dates: start: 20120229, end: 20120509
  9. FLUOROURACIL. [Concomitant]
     Active Substance: FLUOROURACIL
     Indication: METASTASES TO LIVER
     Dosage: 2960 MG, Q3WEEKS
     Route: 041
     Dates: start: 20120229, end: 20120509
  10. ELPLAT [Concomitant]
     Active Substance: OXALIPLATIN
     Indication: COLON CANCER
     Dosage: 100 MG, Q3WEEKS
     Route: 041
     Dates: start: 20120229, end: 20120509
  11. FLUOROURACIL. [Concomitant]
     Active Substance: FLUOROURACIL
     Dosage: 390 MG, Q3WEEKS
     Route: 040
     Dates: start: 20120613, end: 20120704
  12. FLUOROURACIL. [Concomitant]
     Active Substance: FLUOROURACIL
     Dosage: 390 MG, UNK
     Route: 040
     Dates: start: 20120718, end: 20120718
  13. FLUOROURACIL. [Concomitant]
     Active Substance: FLUOROURACIL
     Dosage: 2350 MG, UNK
     Route: 041
     Dates: start: 20120718, end: 20120718
  14. TOPOTECIN [Concomitant]
     Active Substance: IRINOTECAN HYDROCHLORIDE
     Indication: COLON CANCER
     Dosage: 140 MG, UNK
     Route: 041
     Dates: start: 20120718, end: 20120718
  15. CALCIUM LEVOFOLINATE [Concomitant]
     Active Substance: LEVOLEUCOVORIN CALCIUM
     Indication: METASTASES TO LIVER

REACTIONS (2)
  - Neutrophil count decreased [Recovered/Resolved]
  - Colon cancer [Fatal]

NARRATIVE: CASE EVENT DATE: 20120314
